FAERS Safety Report 19592532 (Version 1)
Quarter: 2021Q3

REPORT INFORMATION
  Report Type: Report from Study
  Country: US (occurrence: US)
  Receive Date: 20210722
  Receipt Date: 20210722
  Transmission Date: 20211014
  Serious: Yes (Death)
  Sender: FDA-Public Use
  Company Number: US-ROCHE-2867441

PATIENT
  Age: 78 Year
  Sex: Male
  Weight: 172.7 kg

DRUGS (4)
  1. ATEZOLIZUMAB. [Suspect]
     Active Substance: ATEZOLIZUMAB
     Indication: HAEMATOPOIETIC NEOPLASM
     Dosage: DATE OF MOST RECENT DOSE (840 MG) OF ATEZOLIZUMAB PRIOR TO SAE 23/MAR/2020
     Route: 041
     Dates: start: 20200225
  2. OXALIPLATIN. [Suspect]
     Active Substance: OXALIPLATIN
     Indication: HAEMATOPOIETIC NEOPLASM
     Route: 042
     Dates: start: 20200225
  3. GEMCITABINE HYDROCHLORIDE. [Suspect]
     Active Substance: GEMCITABINE HYDROCHLORIDE
     Indication: HAEMATOPOIETIC NEOPLASM
     Route: 042
     Dates: start: 20200225
  4. RITUXIMAB. [Suspect]
     Active Substance: RITUXIMAB
     Indication: HAEMATOPOIETIC NEOPLASM
     Route: 041
     Dates: start: 20200225

REACTIONS (1)
  - Cardiac arrest [Fatal]

NARRATIVE: CASE EVENT DATE: 20200501
